FAERS Safety Report 7657666-2 (Version None)
Quarter: 2011Q3

REPORT INFORMATION
  Report Type: 
  Country: None (occurrence: None)
  Receive Date: 20110804
  Receipt Date: 20110725
  Transmission Date: 20111222
  Serious: Yes (Hospitalization)
  Sender: FDA-Public Use
  Company Number: US-MERCK-1105USA01171

PATIENT
  Age: 69 Year
  Sex: Male
  Weight: 78 kg

DRUGS (3)
  1. FOSAMAX [Suspect]
     Indication: OSTEOPOROSIS
     Route: 048
     Dates: start: 20000601, end: 20080401
  2. FOSAMAX [Suspect]
     Route: 048
     Dates: start: 20031116
  3. ACTONEL [Suspect]
     Indication: OSTEOPOROSIS
     Route: 048
     Dates: start: 20100401

REACTIONS (20)
  - JAW FRACTURE [None]
  - HIATUS HERNIA [None]
  - ADVERSE EVENT [None]
  - MITRAL VALVE INCOMPETENCE [None]
  - ATRIAL FIBRILLATION [None]
  - LACUNAR INFARCTION [None]
  - GASTROOESOPHAGEAL REFLUX DISEASE [None]
  - VENTRICULAR HYPOKINESIA [None]
  - CARDIAC FAILURE CONGESTIVE [None]
  - ANAEMIA [None]
  - NEPHROPATHY [None]
  - GLAUCOMA [None]
  - CARDIOMEGALY [None]
  - PERICARDIAL CALCIFICATION [None]
  - EMPHYSEMA [None]
  - CHRONIC OBSTRUCTIVE PULMONARY DISEASE [None]
  - ACETABULUM FRACTURE [None]
  - TRICUSPID VALVE INCOMPETENCE [None]
  - BLADDER DIVERTICULUM [None]
  - FEMORAL ARTERY OCCLUSION [None]
